FAERS Safety Report 19920114 (Version 4)
Quarter: 2022Q3

REPORT INFORMATION
  Report Type: Spontaneous
  Country: US (occurrence: US)
  Receive Date: 20211005
  Receipt Date: 20220829
  Transmission Date: 20221027
  Serious: Yes (Other)
  Sender: FDA-Public Use
  Company Number: US-PFIZER INC-202101258191

PATIENT
  Age: 51 Year
  Sex: Female

DRUGS (2)
  1. IBRANCE [Suspect]
     Active Substance: PALBOCICLIB
     Dosage: 75 MG
     Dates: start: 20210505
  2. IBRANCE [Suspect]
     Active Substance: PALBOCICLIB
     Dosage: 75 MG
     Dates: start: 20210813, end: 20211020

REACTIONS (9)
  - Liver injury [Unknown]
  - Neoplasm progression [Unknown]
  - Full blood count abnormal [Unknown]
  - Platelet count decreased [Unknown]
  - White blood cell count decreased [Unknown]
  - Product dose omission issue [Unknown]
  - International normalised ratio increased [Unknown]
  - Liver function test increased [Unknown]
  - Prothrombin time prolonged [Unknown]

NARRATIVE: CASE EVENT DATE: 20210101
